FAERS Safety Report 5798560-1 (Version None)
Quarter: 2008Q3

REPORT INFORMATION
  Report Type: 
  Country: None (occurrence: None)
  Receive Date: 20080701
  Receipt Date: 20080701
  Transmission Date: 20090109
  Serious: Yes (Life-Threatening, Hospitalization)
  Sender: FDA-Public Use
  Company Number: None

PATIENT
  Age: 74 Year
  Sex: Male

DRUGS (2)
  1. SIMVASTATIN [Suspect]
     Indication: HYPERLIPIDAEMIA
     Dosage: 20 MG AT BEDTIME PO
     Route: 048
     Dates: start: 20080620, end: 20080627
  2. NIACIN [Suspect]
     Indication: HYPERLIPIDAEMIA
     Dosage: 500 MG EVERY DAY PO
     Route: 048
     Dates: start: 20080201, end: 20080627

REACTIONS (5)
  - ALANINE AMINOTRANSFERASE INCREASED [None]
  - CHROMATURIA [None]
  - LIVER FUNCTION TEST ABNORMAL [None]
  - MYOSITIS [None]
  - RHABDOMYOLYSIS [None]
